FAERS Safety Report 6693216-5 (Version None)
Quarter: 2010Q2

REPORT INFORMATION
  Report Type: 
  Country: None (occurrence: None)
  Receive Date: 20100421
  Receipt Date: 20100421
  Transmission Date: 20101027
  Serious: Yes (Death)
  Sender: FDA-Public Use
  Company Number: None

PATIENT
  Sex: Male
  Weight: 94.9 kg

DRUGS (1)
  1. FLUOXETINE [Suspect]
     Dosage: TWICE DAILY PO
     Route: 048
     Dates: start: 20100316, end: 20100318

REACTIONS (3)
  - BRAIN DEATH [None]
  - GUN SHOT WOUND [None]
  - INTENTIONAL SELF-INJURY [None]
